FAERS Safety Report 8573634-0 (Version None)
Quarter: 2012Q3

REPORT INFORMATION
  Report Type: 
  Country: None (occurrence: None)
  Receive Date: 20120806
  Receipt Date: 20120731
  Transmission Date: 20120928
  Serious: Yes (Other)
  Sender: FDA-Public Use
  Company Number: DE-TEVA-341952USA

PATIENT
  Sex: Male

DRUGS (3)
  1. TORISEL [Suspect]
     Indication: LYMPHOMA
     Dosage: 75 MG, UNKNOWN/D
     Dates: start: 20120126
  2. TREANDA [Suspect]
     Indication: LYMPHOMA
     Dosage: 189 MG, UNKNOWN /D
     Route: 042
     Dates: start: 20120125
  3. RITUXIMAB [Suspect]
     Indication: LYMPHOMA
     Dosage: 787.50 MG, UNKNOWN/D
     Dates: start: 20120125

REACTIONS (3)
  - BLOOD TRIGLYCERIDES INCREASED [None]
  - BLOOD CHOLESTEROL INCREASED [None]
  - LYMPHOPENIA [None]
